FAERS Safety Report 8043530-6 (Version None)
Quarter: 2012Q1

REPORT INFORMATION
  Report Type: 
  Country: None (occurrence: None)
  Receive Date: 20120112
  Receipt Date: 20120109
  Transmission Date: 20120608
  Serious: No
  Sender: FDA-Public Use
  Company Number: US-PFIZER INC-2012006105

PATIENT
  Sex: Female

DRUGS (2)
  1. PREMARIN [Suspect]
     Dosage: UNK
     Route: 067
  2. ESTRING [Suspect]
     Dosage: UNK

REACTIONS (4)
  - HEADACHE [None]
  - VULVOVAGINAL DRYNESS [None]
  - DRUG INEFFECTIVE [None]
  - HOT FLUSH [None]
